FAERS Safety Report 14200919 (Version 1)
Quarter: 2017Q4

REPORT INFORMATION
  Report Type: Spontaneous
  Country: US (occurrence: US)
  Receive Date: 20171117
  Receipt Date: 20171117
  Transmission Date: 20180321
  Serious: Yes (Other)
  Sender: FDA-Public Use
  Company Number: US-ABBVIE-17P-167-2162089-00

PATIENT
  Sex: Female

DRUGS (13)
  1. AROMASIN [Suspect]
     Active Substance: EXEMESTANE
     Indication: BREAST CANCER
     Dosage: 40MG BY MOUTH ONCE A DAY AT BEDTIME
     Route: 048
     Dates: start: 2009
  2. AROMASIN [Suspect]
     Active Substance: EXEMESTANE
     Dosage: STARTED ON 2012 OR 2013
     Route: 065
  3. BENAZEPRIL [Concomitant]
     Active Substance: BENAZEPRIL HYDROCHLORIDE
     Indication: HYPERTENSION
  4. TRIAMTERENE AND HYDROCHLOROTHIAZIDE [Concomitant]
     Active Substance: HYDROCHLOROTHIAZIDE\TRIAMTERENE
     Indication: PRODUCT USED FOR UNKNOWN INDICATION
  5. AROMASIN [Suspect]
     Active Substance: EXEMESTANE
     Route: 065
  6. PRAVASTATIN. [Concomitant]
     Active Substance: PRAVASTATIN
     Indication: BLOOD CHOLESTEROL INCREASED
  7. XARELTO [Concomitant]
     Active Substance: RIVAROXABAN
     Indication: PRODUCT USED FOR UNKNOWN INDICATION
  8. TAMOXIFEN [Concomitant]
     Active Substance: TAMOXIFEN
     Indication: PRODUCT USED FOR UNKNOWN INDICATION
  9. IBRANCE [Concomitant]
     Active Substance: PALBOCICLIB
     Indication: PRODUCT USED FOR UNKNOWN INDICATION
  10. SYNTHROID [Suspect]
     Active Substance: LEVOTHYROXINE SODIUM
     Indication: PRODUCT USED FOR UNKNOWN INDICATION
     Dosage: TAKING FOR A GOOD 13 YEARS
     Route: 048
     Dates: start: 2004
  11. ALENDRONATE [Concomitant]
     Active Substance: ALENDRONATE SODIUM
     Indication: PRODUCT USED FOR UNKNOWN INDICATION
  12. DILTIZEM [Concomitant]
     Indication: ATRIAL FIBRILLATION
     Dosage: 24 HOUR RELEASE 180MG ONCE DAY
     Dates: start: 201706
  13. TAMOXIFEN [Concomitant]
     Active Substance: TAMOXIFEN
     Indication: PRODUCT USED FOR UNKNOWN INDICATION

REACTIONS (13)
  - Pulmonary thrombosis [Unknown]
  - Hypoaesthesia [Unknown]
  - Pain in extremity [Unknown]
  - Gait inability [Recovered/Resolved with Sequelae]
  - Breast cancer recurrent [Unknown]
  - Abnormal weight gain [Unknown]
  - Spinal fracture [Recovered/Resolved with Sequelae]
  - Pain [Unknown]
  - Breast cancer [Recovered/Resolved]
  - Atrial fibrillation [Unknown]
  - Fall [Recovered/Resolved with Sequelae]
  - Osteoporosis [Unknown]
  - Asthenia [Unknown]

NARRATIVE: CASE EVENT DATE: 2009
